FAERS Safety Report 8266685-7 (Version None)
Quarter: 2012Q2

REPORT INFORMATION
  Report Type: 
  Country: None (occurrence: None)
  Receive Date: 20120408
  Receipt Date: 20120326
  Transmission Date: 20120825
  Serious: Yes (Death, Other)
  Sender: FDA-Public Use
  Company Number: GB-BRISTOL-MYERS SQUIBB COMPANY-16505737

PATIENT
  Age: 34 Year
  Sex: Female

DRUGS (7)
  1. CYCLOPHOSPHAMIDE [Suspect]
     Indication: CHEMOTHERAPY
  2. LAMIVUDINE [Suspect]
     Indication: ANTIRETROVIRAL THERAPY
  3. RALTEGRAVIR [Suspect]
     Indication: ANTIRETROVIRAL THERAPY
  4. VINCRISTINE [Suspect]
     Indication: CHEMOTHERAPY
  5. PREDNISOLONE [Suspect]
     Indication: CHEMOTHERAPY
  6. ATAZANAVIR [Suspect]
     Indication: ANTIRETROVIRAL THERAPY
  7. DOXORUBICIN HCL [Suspect]
     Indication: CHEMOTHERAPY

REACTIONS (8)
  - FALL [None]
  - RENAL FAILURE ACUTE [None]
  - METABOLIC ACIDOSIS [None]
  - PNEUMONIA [None]
  - PULMONARY OEDEMA [None]
  - TRAUMATIC INTRACRANIAL HAEMORRHAGE [None]
  - PANCYTOPENIA [None]
  - ENTEROCOCCAL BACTERAEMIA [None]
